FAERS Safety Report 7138013-1 (Version None)
Quarter: 2010Q4

REPORT INFORMATION
  Report Type: 
  Country: None (occurrence: None)
  Receive Date: 20101206
  Receipt Date: 20101124
  Transmission Date: 20110411
  Serious: Yes (Hospitalization)
  Sender: FDA-Public Use
  Company Number: JP-PFIZER INC-JP-WYE-H17881810

PATIENT
  Age: 72 Year
  Sex: Male
  Weight: 57 kg

DRUGS (4)
  1. ENBREL [Suspect]
     Indication: RHEUMATOID ARTHRITIS
     Dosage: 25MG X2/WEEK
     Route: 058
     Dates: start: 20090128, end: 20091003
  2. ENBREL [Suspect]
     Dosage: 25 MG X2/WEEK
     Dates: start: 20091105, end: 20091116
  3. AZULFIDINE [Suspect]
     Indication: RHEUMATOID ARTHRITIS
     Dosage: 500 MG, 2X/DAY
     Route: 048
     Dates: start: 20081219
  4. PREDONINE [Suspect]
     Indication: RHEUMATOID ARTHRITIS
     Dosage: 5 MG, 2X/DAY
     Route: 048
     Dates: start: 20081219

REACTIONS (7)
  - ENTEROCOLITIS INFECTIOUS [None]
  - HAEMODIALYSIS [None]
  - INTERVERTEBRAL DISC PROTRUSION [None]
  - POST PROCEDURAL INFECTION [None]
  - RENAL FAILURE [None]
  - STAPHYLOCOCCAL INFECTION [None]
  - WOUND INFECTION STAPHYLOCOCCAL [None]
